FAERS Safety Report 15001722 (Version 1)
Quarter: 2018Q2

REPORT INFORMATION
  Report Type: Spontaneous
  Country: DE (occurrence: DE)
  Receive Date: 20180612
  Receipt Date: 20180612
  Transmission Date: 20180711
  Serious: Yes (Hospitalization)
  Sender: FDA-Public Use
  Company Number: DE-TEVA-2018-DE-904497

PATIENT
  Age: 31 Year
  Sex: Female
  Weight: 46 kg

DRUGS (9)
  1. COLECALCIFEROL [Concomitant]
     Active Substance: CHOLECALCIFEROL
     Dosage: 20000 IE, 1X PRO WOCHE, KAPSELN
     Route: 048
  2. MYDOCALM [Concomitant]
     Dosage: 50 MG, 1-1-1-1, TABLETTEN
     Route: 048
  3. COTRIM FORTE [Concomitant]
     Active Substance: SULFAMETHOXAZOLE\TRIMETHOPRIM
     Dosage: 800|160 MG, SCHEMA, TABLETTEN
     Route: 048
  4. NATRIUMBIKARBONAT [Concomitant]
     Dosage: 1 G, 1-1-1-1, TABLETTEN
     Route: 048
  5. NUTRIFLEX [Concomitant]
     Active Substance: AMINO ACIDS\CARBOHYDRATES\ELECTROLYTES NOS
     Dosage: 4.11|5.48|3.99|3.42|6.15|3.18|1|4.51|4.73|2.19|8.49|2.63|6.14|2.89|5.95|5.25|180|25|25 G, 1X PRO NAC
     Route: 051
  6. PANTOPRAZOL [Concomitant]
     Active Substance: PANTOPRAZOLE SODIUM
     Dosage: 40 MILLIGRAM DAILY;
     Route: 048
  7. MYFORTIC [Suspect]
     Active Substance: MYCOPHENOLATE SODIUM
     Dosage: 360 MG, 1-0-1-0, TABLETTEN
     Route: 048
  8. CICLOSPORIN [Suspect]
     Active Substance: CYCLOSPORINE
     Dosage: 50 MG, 1-0-1-0, TABLETTEN
     Route: 048
  9. JONOSTERIL [Concomitant]
     Active Substance: CALCIUM ACETATE\MAGNESIUM ACETATE\POTASSIUM ACETATE\SODIUM ACETATE\SODIUM CHLORIDE
     Dosage: 2-3 PRO TAG, INJEKTIONS-/INFUSIONSL?SUNG
     Route: 042

REACTIONS (5)
  - Pyrexia [Unknown]
  - Cachexia [Unknown]
  - Diarrhoea [Unknown]
  - Haemoptysis [Unknown]
  - Dyspnoea [Unknown]
